FAERS Safety Report 6218027-6 (Version None)
Quarter: 2009Q2

REPORT INFORMATION
  Report Type: 
  Country: None (occurrence: None)
  Receive Date: 20090608
  Receipt Date: 20090524
  Transmission Date: 20091009
  Serious: Yes (Other)
  Sender: FDA-Public Use
  Company Number: EG-ELI_LILLY_AND_COMPANY-EG200905000510

PATIENT
  Age: 65 Year
  Sex: Female

DRUGS (1)
  1. TERIPARATIDE [Suspect]
     Indication: OSTEOPOROSIS POSTMENOPAUSAL
     Dosage: 20 UG, DAILY (1/D)
     Route: 058
     Dates: start: 20081218, end: 20090502

REACTIONS (2)
  - INJECTION SITE PAIN [None]
  - PAIN IN EXTREMITY [None]
